FAERS Safety Report 8976415 (Version 2)
Quarter: 2013Q1

REPORT INFORMATION
  Report Type: Spontaneous
  Country: US (occurrence: US)
  Receive Date: 20121220
  Receipt Date: 20130124
  Transmission Date: 20140127
  Serious: Yes (Hospitalization)
  Sender: FDA-Public Use
  Company Number: US-BRISTOL-MYERS SQUIBB COMPANY-17205477

PATIENT
  Age: 63 Year
  Sex: Male
  Weight: 70.29 kg

DRUGS (8)
  1. COUMADIN TABS 5 MG [Suspect]
     Indication: CEREBROVASCULAR ACCIDENT PROPHYLAXIS
  2. WARFARIN SODIUM [Suspect]
     Dates: start: 20121209
  3. PLAVIX [Suspect]
  4. CAPTOPRIL [Concomitant]
  5. LIPITOR [Concomitant]
  6. CORGARD [Concomitant]
  7. ASPIRIN [Concomitant]
  8. PREVACID [Concomitant]

REACTIONS (5)
  - Stent placement [Unknown]
  - Dry mouth [Unknown]
  - Nausea [Unknown]
  - Heart rate increased [Unknown]
  - Abdominal discomfort [Unknown]
